FAERS Safety Report 18788480 (Version 1)
Quarter: 2021Q1

REPORT INFORMATION
  Report Type: Other
  Country: US (occurrence: US)
  Receive Date: 20210125
  Receipt Date: 20210125
  Transmission Date: 20210419
  Serious: Yes (Hospitalization, Other)
  Sender: FDA-Public Use
  Company Number: US-ACORDA-ACO_164651_2020

PATIENT
  Age: 58 Year
  Sex: Male

DRUGS (4)
  1. AMPYRA [Suspect]
     Active Substance: DALFAMPRIDINE
     Indication: GAIT DISTURBANCE
     Dosage: UNK
     Route: 065
  2. TYSABRI [Suspect]
     Active Substance: NATALIZUMAB
     Dosage: 300 MILLIGRAM, ONCE PER 6 WEEKS
     Route: 042
     Dates: start: 20110309
  3. TYSABRI [Suspect]
     Active Substance: NATALIZUMAB
     Indication: MULTIPLE SCLEROSIS
     Dosage: 300 MILLIGRAM, MONTHLY
     Route: 042
     Dates: start: 20080319, end: 20091207
  4. TYSABRI [Suspect]
     Active Substance: NATALIZUMAB
     Dosage: 300 MILLIGRAM, MONTHLY
     Route: 042
     Dates: start: 20110309

REACTIONS (12)
  - Muscular weakness [Unknown]
  - Muscle spasticity [Unknown]
  - Escherichia infection [Unknown]
  - Delusion [Unknown]
  - Hip fracture [Recovered/Resolved]
  - Hallucination [Unknown]
  - Multiple sclerosis [Unknown]
  - Movement disorder [Unknown]
  - Gait inability [Unknown]
  - Dysstasia [Unknown]
  - Fall [Recovered/Resolved]
  - Confusional state [Unknown]

NARRATIVE: CASE EVENT DATE: 20191226
